FAERS Safety Report 23196818 (Version 5)
Quarter: 2024Q3

REPORT INFORMATION
  Report Type: Spontaneous
  Country: US (occurrence: US)
  Receive Date: 20231117
  Receipt Date: 20240905
  Transmission Date: 20241017
  Serious: Yes (Other)
  Sender: PFIZER
  Company Number: US-PFIZER INC-PV202300186816

PATIENT
  Age: 84 Year
  Sex: Female
  Weight: 80.272 kg

DRUGS (9)
  1. IBRANCE [Suspect]
     Active Substance: PALBOCICLIB
     Indication: Breast cancer female
     Dosage: 100 MG, CYCLIC (ONCE A DAY FOR 21 DAYS WITH 7 DAYS OFF/ 21 DAYS ON 28 DAYS CYCLE)
     Route: 048
     Dates: start: 201905, end: 20230810
  2. IBRANCE [Suspect]
     Active Substance: PALBOCICLIB
     Indication: Bone cancer
     Dosage: 100 MG, CYCLIC (ONCE A DAY FOR 21 DAYS WITH 7 DAYS OFF)
     Route: 048
     Dates: start: 20230831, end: 20231102
  3. IBRANCE [Suspect]
     Active Substance: PALBOCICLIB
     Dosage: 100 MG, CYCLIC (ONCE A DAY FOR 21 DAYS WITH 7 DAYS OFF)
     Route: 048
     Dates: end: 20231130
  4. IBRANCE [Suspect]
     Active Substance: PALBOCICLIB
     Dosage: 100 MG, CYCLIC (ONCE A DAY FOR 21 DAYS WITH 7 DAYS OFF)
     Route: 048
     Dates: start: 2023
  5. FEMARA [Concomitant]
     Active Substance: LETROZOLE
     Dosage: 2.5 MG, DAILY
  6. XGEVA [Concomitant]
     Active Substance: DENOSUMAB
     Dosage: 120 MG (Q 4 WEEKS)
  7. XGEVA [Concomitant]
     Active Substance: DENOSUMAB
     Dosage: 120 MG (Q (EVERY) 4 WEEKS)
  8. ZOMETA [Concomitant]
     Active Substance: ZOLEDRONIC ACID
     Dosage: 4 MG (Q4 WEEKS)
     Route: 042
     Dates: start: 20190620
  9. ZOMETA [Concomitant]
     Active Substance: ZOLEDRONIC ACID
     Dosage: 4 MG (Q (EVERY) 4 WEEKS)
     Route: 042
     Dates: start: 20190620

REACTIONS (1)
  - Pancytopenia [Unknown]
